FAERS Safety Report 15270468 (Version 2)
Quarter: 2018Q3

REPORT INFORMATION
  Report Type: Spontaneous
  Country: US (occurrence: US)
  Receive Date: 20180813
  Receipt Date: 20180917
  Transmission Date: 20181010
  Serious: No
  Sender: FDA-Public Use
  Company Number: US-GLAXOSMITHKLINE-US2018136875

PATIENT
  Age: 51 Year
  Sex: Female

DRUGS (1)
  1. ALLI [Suspect]
     Active Substance: ORLISTAT
     Indication: WEIGHT LOSS DIET
     Dosage: UNK
     Route: 048
     Dates: start: 20180702, end: 20180705

REACTIONS (8)
  - Constipation [Recovering/Resolving]
  - Abdominal pain upper [Recovering/Resolving]
  - Steatorrhoea [Unknown]
  - Product quality issue [Unknown]
  - Faeces discoloured [Unknown]
  - Product storage error [Unknown]
  - Wrong technique in product usage process [Unknown]
  - Malaise [Recovering/Resolving]
